FAERS Safety Report 10144648 (Version 1)
Quarter: 2014Q2

REPORT INFORMATION
  Report Type: Spontaneous
  Country: US (occurrence: US)
  Receive Date: 20140430
  Receipt Date: 20140430
  Transmission Date: 20141212
  Serious: No
  Sender: FDA-Public Use
  Company Number: US-SANOFI-AVENTIS-2013SA052786

PATIENT
  Age: 46 Year
  Sex: Male
  Weight: 105.68 kg

DRUGS (3)
  1. LOVENOX [Suspect]
     Indication: THROMBOSIS
     Dosage: 900 AND 1700
     Route: 065
     Dates: start: 20130210, end: 20130303
  2. LOVENOX [Suspect]
     Indication: THROMBOSIS
  3. COUMADIN [Suspect]
     Indication: THROMBOSIS
     Route: 065
     Dates: start: 20130210, end: 20130512

REACTIONS (1)
  - Weight increased [Not Recovered/Not Resolved]
